FAERS Safety Report 5103440-0 (Version None)
Quarter: 2006Q3

REPORT INFORMATION
  Report Type: 
  Country: None (occurrence: None)
  Receive Date: 20060913
  Receipt Date: 20060905
  Transmission Date: 20061208
  Serious: Yes (Life-Threatening)
  Sender: FDA-Public Use
  Company Number: 2006SE04764

PATIENT
  Age: 17076 Day
  Sex: Male
  Weight: 49 kg

DRUGS (5)
  1. BLOPRESS TABLETS 2 [Suspect]
     Indication: CONGESTIVE CARDIOMYOPATHY
     Route: 048
     Dates: start: 20060126, end: 20060126
  2. HALFDIGOXIN-KY [Concomitant]
     Indication: CONGESTIVE CARDIOMYOPATHY
     Route: 048
     Dates: start: 20060126, end: 20060126
  3. 8-HOUR BAYER [Concomitant]
     Route: 048
  4. PLETAL [Concomitant]
     Route: 048
  5. OMEPRAZOLE [Concomitant]
     Route: 048

REACTIONS (2)
  - DRUG INEFFECTIVE [None]
  - SHOCK [None]
